FAERS Safety Report 12224020 (Version 1)
Quarter: 2016Q1

REPORT INFORMATION
  Report Type: Spontaneous
  Country: US (occurrence: US)
  Receive Date: 20160330
  Receipt Date: 20160330
  Transmission Date: 20160526
  Serious: Yes (Hospitalization)
  Sender: FDA-Public Use
  Company Number: US-PFIZER INC-2016178714

PATIENT
  Age: 52 Year
  Sex: Male

DRUGS (2)
  1. LYRICA [Suspect]
     Active Substance: PREGABALIN
     Indication: DIABETIC NEUROPATHY
     Dosage: 300 MG, 1X/DAY
  2. ENALAPRIL [Interacting]
     Active Substance: ENALAPRIL
     Dosage: UNK

REACTIONS (2)
  - Drug interaction [Unknown]
  - Blood pressure decreased [Unknown]
